FAERS Safety Report 11211572 (Version 1)
Quarter: 2015Q2

REPORT INFORMATION
  Report Type: Spontaneous
  Country: US (occurrence: US)
  Receive Date: 20150623
  Receipt Date: 20150623
  Transmission Date: 20150821
  Serious: Yes (Other)
  Sender: FDA-Public Use
  Company Number: US-BAYER-2015-362663

PATIENT
  Age: 29 Year
  Sex: Male

DRUGS (2)
  1. ULTRAVIST [Suspect]
     Active Substance: IOPROMIDE
     Indication: APPENDICITIS
  2. ULTRAVIST [Suspect]
     Active Substance: IOPROMIDE
     Indication: COMPUTERISED TOMOGRAM ABDOMEN
     Dosage: 107 ML, ONCE
     Dates: start: 20150619, end: 20150619

REACTIONS (2)
  - Pharyngeal oedema [None]
  - Dizziness [None]

NARRATIVE: CASE EVENT DATE: 20150619
